FAERS Safety Report 9387489 (Version 3)
Quarter: 2013Q3

REPORT INFORMATION
  Report Type: Spontaneous
  Country: US (occurrence: US)
  Receive Date: 20130708
  Receipt Date: 20130815
  Transmission Date: 20140515
  Serious: No
  Sender: FDA-Public Use
  Company Number: US-PFIZER INC-2013198402

PATIENT
  Sex: Female

DRUGS (1)
  1. NORPACE CR [Suspect]
     Dosage: 150 MG, UNK

REACTIONS (2)
  - Drug ineffective [Unknown]
  - Product container issue [Unknown]
